FAERS Safety Report 8825701 (Version 1)
Quarter: 2012Q4

REPORT INFORMATION
  Report Type: 
  Country: US (occurrence: US)
  Receive Date: 20121004
  Receipt Date: 20121004
  Transmission Date: 20130627
  Serious: Yes (Other)
  Sender: FDA-Public Use
  Company Number: US-PFIZER INC-2012242083

PATIENT

DRUGS (1)
  1. NEURONTIN [Suspect]
     Indication: BIPOLAR DISORDER
     Dosage: 300 mg, 2x/day
     Dates: end: 2000

REACTIONS (2)
  - Suicide attempt [Unknown]
  - Off label use [Unknown]
